FAERS Safety Report 10521189 (Version 2)
Quarter: 2014Q4

REPORT INFORMATION
  Report Type: Report from Study
  Country: FR (occurrence: FR)
  Receive Date: 20141016
  Receipt Date: 20141016
  Transmission Date: 20150528
  Serious: Yes (Hospitalization)
  Sender: FDA-Public Use
  Company Number: FR-BRISTOL-MYERS SQUIBB COMPANY-14854731

PATIENT
  Age: 63 Year
  Sex: Female

DRUGS (5)
  1. CORTANCYL [Concomitant]
     Active Substance: PREDNISONE
     Dates: start: 20091109, end: 20091211
  2. L-THYROXINE [Concomitant]
     Active Substance: LEVOTHYROXINE
     Dates: start: 20091113
  3. IPILIMUMAB [Suspect]
     Active Substance: IPILIMUMAB
     Indication: MALIGNANT MELANOMA
     Dosage: INTERRUPTED ON 19OCT09
     Route: 042
     Dates: start: 20090908
  4. HYDROCORTISONE. [Concomitant]
     Active Substance: HYDROCORTISONE
     Dates: start: 20091214
  5. CORTICOSTEROID [Concomitant]
     Active Substance: CORTICOSTEROID NOS
     Dates: start: 20091109, end: 20091211

REACTIONS (2)
  - Hypophysitis [Not Recovered/Not Resolved]
  - Headache [Recovered/Resolved]

NARRATIVE: CASE EVENT DATE: 20091103
